FAERS Safety Report 12926517 (Version 1)
Quarter: 2016Q4

REPORT INFORMATION
  Report Type: Spontaneous
  Country: US (occurrence: US)
  Receive Date: 20161109
  Receipt Date: 20161109
  Transmission Date: 20170207
  Serious: Yes (Hospitalization)
  Sender: FDA-Public Use
  Company Number: US-FRESENIUS MEDICAL CARE RENAL THERAPIES GROUP-FMC-1610-001216

PATIENT
  Age: 61 Year
  Sex: Male

DRUGS (1)
  1. DELFLEX [Suspect]
     Active Substance: CALCIUM CHLORIDE\DEXTROSE\MAGNESIUM CHLORIDE\SODIUM CHLORIDE\SODIUM LACTATE
     Indication: END STAGE RENAL DISEASE
     Dosage: 1000GM X 3 DOSES
     Route: 033

REACTIONS (3)
  - Inadequate aseptic technique in use of product [None]
  - Peritonitis bacterial [Recovered/Resolved]
  - Staphylococcal infection [None]

NARRATIVE: CASE EVENT DATE: 20160913
